FAERS Safety Report 8249386-0 (Version None)
Quarter: 2012Q2

REPORT INFORMATION
  Report Type: 
  Country: None (occurrence: None)
  Receive Date: 20120402
  Receipt Date: 20120323
  Transmission Date: 20120825
  Serious: Yes (Other)
  Sender: FDA-Public Use
  Company Number: JP-SANOFI-AVENTIS-2012SA021428

PATIENT
  Age: 72 Year
  Sex: Female

DRUGS (6)
  1. LANTUS [Suspect]
     Indication: TYPE 2 DIABETES MELLITUS
     Dosage: DOSE- 6 U AT DINNER DOSE:6 UNIT(S)
     Route: 058
     Dates: start: 20080918
  2. ORAL ANTIDIABETICS [Concomitant]
     Indication: TYPE 2 DIABETES MELLITUS
     Dates: start: 20000901
  3. ANGIOTENSIN II ANTAGONISTS [Concomitant]
  4. BIGUANIDES [Concomitant]
     Indication: TYPE 2 DIABETES MELLITUS
     Dates: start: 20000901
  5. HMG COA REDUCTASE INHIBITORS [Concomitant]
  6. ALL OTHER THERAPEUTIC PRODUCTS [Concomitant]

REACTIONS (1)
  - CEREBROVASCULAR ACCIDENT [None]
